FAERS Safety Report 18678218 (Version 1)
Quarter: 2020Q4

REPORT INFORMATION
  Report Type: Other
  Country: US (occurrence: US)
  Receive Date: 20201230
  Receipt Date: 20201230
  Transmission Date: 20210114
  Serious: Yes (Death)
  Sender: FDA-Public Use
  Company Number: US-ROCHE-2729444

PATIENT
  Age: 53 Year
  Sex: Male

DRUGS (3)
  1. OCREVUS [Suspect]
     Active Substance: OCRELIZUMAB
     Indication: RELAPSING-REMITTING MULTIPLE SCLEROSIS
     Dosage: PRESCRIBED WITH 300 MG DAY 1 AND DAY 15 THEN 600 MG EVERY 6 MONTHS?DATE OF TREATMENT: 14/JUL/2020
     Route: 065
     Dates: start: 20190129, end: 20191213
  2. OCREVUS [Suspect]
     Active Substance: OCRELIZUMAB
     Route: 065
     Dates: start: 201912
  3. OCREVUS [Suspect]
     Active Substance: OCRELIZUMAB
     Indication: PRIMARY PROGRESSIVE MULTIPLE SCLEROSIS
     Route: 065
     Dates: start: 20191213

REACTIONS (1)
  - Death [Fatal]

NARRATIVE: CASE EVENT DATE: 20200628
